FAERS Safety Report 8333959-0 (Version None)
Quarter: 2012Q2

REPORT INFORMATION
  Report Type: 
  Country: None (occurrence: None)
  Receive Date: 20120503
  Receipt Date: 20120422
  Transmission Date: 20120825
  Serious: Yes (Death)
  Sender: FDA-Public Use
  Company Number: US-ACTELION-A-US2012-64614

PATIENT

DRUGS (3)
  1. LETAIRIS [Concomitant]
  2. ADCIRCA [Concomitant]
  3. EPOPROSTENOL SODIUM [Suspect]
     Indication: PULMONARY ARTERIAL HYPERTENSION
     Dosage: 21 NG/KG, PER MIN
     Route: 055
     Dates: start: 20111229, end: 20120422

REACTIONS (1)
  - DEATH [None]
